FAERS Safety Report 15323136 (Version 1)
Quarter: 2018Q3

REPORT INFORMATION
  Report Type: Report from Study
  Country: BE (occurrence: BE)
  Receive Date: 20180827
  Receipt Date: 20180827
  Transmission Date: 20181010
  Serious: Yes (Death)
  Sender: FDA-Public Use
  Company Number: BE-PFIZER INC-2748203

PATIENT

DRUGS (5)
  1. CYTARABINE. [Suspect]
     Active Substance: CYTARABINE
     Indication: CHEMOTHERAPY
     Dosage: 100 MG/M2, DAILY ON DAYS 1?10
  2. CYTARABINE. [Suspect]
     Active Substance: CYTARABINE
     Dosage: 500 MG/M2, EVERY 12 HOURS ON DAYS 1?6
  3. CLOFARABINE. [Suspect]
     Active Substance: CLOFARABINE
     Indication: CHEMOTHERAPY
     Dosage: 10 MG/M2, DAILY ON DAYS 2,4, 6, 8,10
     Route: 040
  4. IDARUBICIN [Suspect]
     Active Substance: IDARUBICIN
     Indication: CHEMOTHERAPY
     Dosage: 10 MG/M2, DAILY ON DAYS 1,3 AND 5
  5. IDARUBICIN [Suspect]
     Active Substance: IDARUBICIN
     Dosage: 10 MG/M2, DAILY ON DAYS 4, 5 AND 6

REACTIONS (1)
  - Death [Fatal]
